FAERS Safety Report 14107412 (Version 2)
Quarter: 2018Q3

REPORT INFORMATION
  Report Type: Spontaneous
  Country: BR (occurrence: BR)
  Receive Date: 20171019
  Receipt Date: 20180720
  Transmission Date: 20181010
  Serious: Yes (Other)
  Sender: FDA-Public Use
  Company Number: BR-PFIZER INC-2017440925

PATIENT
  Age: 57 Year
  Sex: Female

DRUGS (5)
  1. XALATAN [Suspect]
     Active Substance: LATANOPROST
     Indication: INTRAOCULAR PRESSURE INCREASED
     Dosage: UNK
     Route: 047
  2. ALPHAGAN P [Concomitant]
     Active Substance: BRIMONIDINE TARTRATE
     Dosage: UNK
  3. XALATAN [Suspect]
     Active Substance: LATANOPROST
     Indication: GLAUCOMA
     Dosage: 2 DROPS, 1X/DAY (ONE DROP IN EACH EYE AT NIGHT)
     Route: 047
  4. OPTIVE [Concomitant]
     Active Substance: CARBOXYMETHYLCELLULOSE SODIUM\GLYCERIN
     Dosage: UNK
  5. AZORGA [Concomitant]
     Active Substance: BRINZOLAMIDE\TIMOLOL MALEATE
     Indication: GLAUCOMA
     Dosage: UNK, 3X/DAY

REACTIONS (6)
  - Conjunctivitis bacterial [Unknown]
  - Intraocular pressure increased [Not Recovered/Not Resolved]
  - Vision blurred [Unknown]
  - Cataract [Not Recovered/Not Resolved]
  - Corneal infiltrates [Unknown]
  - Eye oedema [Unknown]

NARRATIVE: CASE EVENT DATE: 2014
